FAERS Safety Report 7411828-8 (Version None)
Quarter: 2011Q2

REPORT INFORMATION
  Report Type: 
  Country: None (occurrence: None)
  Receive Date: 20110413
  Receipt Date: 20110407
  Transmission Date: 20111010
  Serious: Yes (Other)
  Sender: FDA-Public Use
  Company Number: JP-GENZYME-FLUD-1001041

PATIENT
  Age: 49 Year

DRUGS (9)
  1. THYMOGLOBULIN [Suspect]
     Indication: IMMUNOSUPPRESSANT DRUG THERAPY
     Route: 065
  2. MELPHALAN [Suspect]
     Indication: APLASTIC ANAEMIA
     Dosage: 40 MG/M2, QD
     Route: 065
  3. PREDNISONE [Suspect]
     Indication: IMMUNOSUPPRESSANT DRUG THERAPY
     Route: 065
  4. MELPHALAN [Suspect]
     Indication: CORD BLOOD TRANSPLANT THERAPY
  5. FLUDARA [Suspect]
     Indication: APLASTIC ANAEMIA
     Dosage: 25 MG/M2, QD
     Route: 065
  6. FLUDARA [Suspect]
     Indication: CORD BLOOD TRANSPLANT THERAPY
  7. TACROLIMUS [Concomitant]
     Indication: PROPHYLAXIS AGAINST GRAFT VERSUS HOST DISEASE
     Route: 065
  8. MYCOPHENOLATE MOFETIL [Concomitant]
     Indication: PROPHYLAXIS AGAINST GRAFT VERSUS HOST DISEASE
     Route: 065
  9. CYCLOSPORINE [Suspect]
     Indication: IMMUNOSUPPRESSANT DRUG THERAPY
     Route: 065

REACTIONS (1)
  - CHRONIC GRAFT VERSUS HOST DISEASE [None]
